FAERS Safety Report 9525119 (Version 1)
Quarter: 2013Q1

REPORT INFORMATION
  Report Type: Spontaneous
  Country: US (occurrence: None)
  Receive Date: 20130314
  Receipt Date: 20130314
  Transmission Date: 20140127
  Serious: No
  Sender: FDA-Public Use
  Company Number: 1211USA010588

PATIENT
  Age: 65 Year
  Sex: Male
  Weight: 79.4 kg

DRUGS (4)
  1. VICTRELIS (BOCEPREVIR) CAPSULE, 200MG [Suspect]
     Dosage: 4 DF, TID, ORAL
     Route: 048
  2. SIMVASTATIN TABLETS, USP (SIMVASTATIN) FILM-COATED TABLET, 10 MG [Concomitant]
  3. CRESTOR (ROSUVASTATIN CALCIUM) , 10 MG [Concomitant]
  4. VITAMINS (UNSPECIFIED) (VITAMINS (UNSEPCIFIED)) CAPSULE [Concomitant]

REACTIONS (3)
  - Dyspnoea [None]
  - Decreased appetite [None]
  - Fatigue [None]
